FAERS Safety Report 4628486-8 (Version None)
Quarter: 2005Q2

REPORT INFORMATION
  Report Type: 
  Country: None (occurrence: None)
  Receive Date: 20050404
  Receipt Date: 20050322
  Transmission Date: 20051028
  Serious: Yes (Death, Life-Threatening, Other)
  Sender: FDA-Public Use
  Company Number: 2005044811

PATIENT
  Age: 1 Day
  Sex: Male
  Weight: 3.8 kg

DRUGS (2)
  1. FOSPHENYTOIN SODIUM [Suspect]
     Indication: CONVULSION
     Dosage: INTRAVENOUS
     Route: 042
     Dates: start: 20041225, end: 20041225
  2. PHENOBARBITAL TAB [Concomitant]

REACTIONS (6)
  - CARDIAC ARREST NEONATAL [None]
  - CONDITION AGGRAVATED [None]
  - CONVULSION NEONATAL [None]
  - MEDICATION ERROR [None]
  - NEONATAL RESPIRATORY ARREST [None]
  - OVERDOSE [None]
